FAERS Safety Report 20016647 (Version 1)
Quarter: 2021Q4

REPORT INFORMATION
  Report Type: Spontaneous
  Country: US (occurrence: None)
  Receive Date: 20211104
  Receipt Date: 20211104
  Transmission Date: 20220303
  Serious: No
  Sender: FDA-Public Use
  Company Number: None

PATIENT
  Age: 66 Year
  Sex: Male
  Weight: 72.9 kg

DRUGS (9)
  1. MONTELUKAST SODIUM [Suspect]
     Active Substance: MONTELUKAST SODIUM
     Indication: Hypersensitivity
     Dosage: FREQUENCY : DAILY;?
     Route: 048
     Dates: start: 19960601, end: 20211103
  2. TAMSULOSIN [Concomitant]
     Active Substance: TAMSULOSIN
  3. ALLEGRA [Concomitant]
     Active Substance: FEXOFENADINE HYDROCHLORIDE
  4. OMEPRAZOLE [Concomitant]
     Active Substance: OMEPRAZOLE
  5. FELODIPINE [Concomitant]
     Active Substance: FELODIPINE
  6. QUINAPRIL [Concomitant]
     Active Substance: QUINAPRIL
  7. SIMVASTATIN [Concomitant]
     Active Substance: SIMVASTATIN
  8. VITAMIN B12 [Concomitant]
     Active Substance: CYANOCOBALAMIN
  9. VITAMIN D [Concomitant]
     Active Substance: VITAMIN D NOS

REACTIONS (13)
  - Anger [None]
  - Hostility [None]
  - Disturbance in attention [None]
  - Nightmare [None]
  - Depression [None]
  - Anxiety [None]
  - Memory impairment [None]
  - Obsessive-compulsive symptom [None]
  - Restlessness [None]
  - Suicidal ideation [None]
  - Tremor [None]
  - Insomnia [None]
  - Dyskinesia [None]

NARRATIVE: CASE EVENT DATE: 19960601
